FAERS Safety Report 13045988 (Version 2)
Quarter: 2017Q3

REPORT INFORMATION
  Report Type: Spontaneous
  Country: AU (occurrence: AU)
  Receive Date: 20161220
  Receipt Date: 20170809
  Transmission Date: 20171127
  Serious: Yes (Other)
  Sender: FDA-Public Use
  Company Number: AU-HIKMA PHARMACEUTICALS CO. LTD-2016AU013097

PATIENT

DRUGS (5)
  1. INFLECTRA [Suspect]
     Active Substance: INFLIXIMAB-DYYB
     Indication: NEUROSARCOIDOSIS
  2. MYCOPHENOLATE [Concomitant]
     Active Substance: MYCOPHENOLIC ACID
  3. INFLECTRA [Suspect]
     Active Substance: INFLIXIMAB-DYYB
     Indication: SARCOIDOSIS
     Dosage: 5 MG/KG,  WEEKS 0, 2 AND 6, THEN 8 WEEKLY
     Dates: start: 201512
  4. PREDNISOLONE. [Concomitant]
     Active Substance: PREDNISOLONE
  5. PREDNISONE. [Concomitant]
     Active Substance: PREDNISONE
     Indication: SARCOIDOSIS
     Dosage: UNK

REACTIONS (7)
  - Sarcoidosis [Unknown]
  - Disease progression [Unknown]
  - Myalgia [Unknown]
  - Disease recurrence [Unknown]
  - Fatigue [Unknown]
  - Headache [Unknown]
  - Neurosarcoidosis [Unknown]

NARRATIVE: CASE EVENT DATE: 201607
